FAERS Safety Report 8385851-3 (Version None)
Quarter: 2012Q2

REPORT INFORMATION
  Report Type: 
  Country: None (occurrence: None)
  Receive Date: 20120523
  Receipt Date: 20120502
  Transmission Date: 20120825
  Serious: Yes (Other)
  Sender: FDA-Public Use
  Company Number: 2012P1020069

PATIENT
  Age: 40 Year
  Sex: Male
  Weight: 172 kg

DRUGS (14)
  1. PLAVIX [Concomitant]
  2. DOXYCYCLINE [Concomitant]
  3. ADDERALL 5 [Concomitant]
  4. LISINOPRIL [Concomitant]
  5. OXYCODONE HCL [Concomitant]
  6. SOMA [Concomitant]
  7. PROMETHAZINE [Concomitant]
  8. ONDANSETRON [Concomitant]
  9. WARFARIN SODIUM [Concomitant]
  10. DOCUSATE SODIUM [Concomitant]
  11. ZETIA [Concomitant]
  12. ACIPHEX [Concomitant]
  13. FENTANYL CITRATE [Suspect]
     Indication: BACK DISORDER
     Dosage: 1 PATCHES; Q48H; TDER
     Route: 062
     Dates: start: 20080101
  14. SULFAMETH OXALATE [Concomitant]

REACTIONS (9)
  - POST PROCEDURAL INFECTION [None]
  - PAIN [None]
  - DRUG TOLERANCE INCREASED [None]
  - CONDITION AGGRAVATED [None]
  - PRODUCT ADHESION ISSUE [None]
  - ESCHERICHIA INFECTION [None]
  - GRAFT COMPLICATION [None]
  - TOOTH FRACTURE [None]
  - STAPHYLOCOCCAL INFECTION [None]
